FAERS Safety Report 9017099 (Version 1)
Quarter: 2013Q1

REPORT INFORMATION
  Report Type: Spontaneous
  Country: US (occurrence: US)
  Receive Date: 20130117
  Receipt Date: 20130117
  Transmission Date: 20140127
  Serious: Yes (Other)
  Sender: FDA-Public Use
  Company Number: US-009507513-1001USA03262

PATIENT
  Age: 59 Year
  Sex: Female

DRUGS (3)
  1. SINGULAIR [Suspect]
     Indication: ASTHMA
     Route: 048
  2. ADVAIR [Suspect]
     Dosage: UNK
     Dates: start: 2009
  3. PREDNISONE [Concomitant]

REACTIONS (7)
  - Fall [Unknown]
  - Myalgia [Unknown]
  - Muscle spasms [Unknown]
  - Dyspnoea [Unknown]
  - Pneumonia [Unknown]
  - Nasopharyngitis [Unknown]
  - Respiratory disorder [Unknown]
